FAERS Safety Report 4659376-2 (Version None)
Quarter: 2005Q2

REPORT INFORMATION
  Report Type: 
  Country: None (occurrence: None)
  Receive Date: 20050510
  Receipt Date: 20050428
  Transmission Date: 20051028
  Serious: Yes (Death, Hospitalization)
  Sender: FDA-Public Use
  Company Number: USA-2005-0019684

PATIENT
  Age: 3 Year
  Sex: Female

DRUGS (6)
  1. CEFDITOREN PIVOXIL (SIMILAR  TO NDA 21-222) (CEFDITOREN PIVOXIL) [Suspect]
     Indication: ACUTE TONSILLITIS
     Dosage: 43 MG, ORAL
     Route: 048
     Dates: start: 20030221
  2. CALONAL [Concomitant]
  3. ASVERIN (TIPEDINE HIBENZATE) [Concomitant]
  4. POLARAMINE [Concomitant]
  5. ALPINYL [Concomitant]
  6. ZITHROMAX [Concomitant]

REACTIONS (2)
  - COUGH [None]
  - TOXIC EPIDERMAL NECROLYSIS [None]
